FAERS Safety Report 7563750-4 (Version None)
Quarter: 2011Q2

REPORT INFORMATION
  Report Type: 
  Country: None (occurrence: None)
  Receive Date: 20110622
  Receipt Date: 20110617
  Transmission Date: 20111010
  Serious: Yes (Hospitalization, Disabling, Other)
  Sender: FDA-Public Use
  Company Number: US-MERCK-1011USA01586

PATIENT
  Age: 46 Year
  Sex: Female
  Weight: 81 kg

DRUGS (2)
  1. FOSAMAX [Suspect]
     Route: 048
     Dates: start: 20070101, end: 20070601
  2. FOSAMAX [Suspect]
     Indication: OSTEOPENIA
     Route: 048
     Dates: start: 20030401, end: 20070601

REACTIONS (34)
  - HAEMORRHOIDAL HAEMORRHAGE [None]
  - EDENTULOUS [None]
  - RHINORRHOEA [None]
  - EYE INJURY [None]
  - SYNCOPE [None]
  - BURNS SECOND DEGREE [None]
  - SINUSITIS [None]
  - FALL [None]
  - ATROPHIC VULVOVAGINITIS [None]
  - TOOTH FRACTURE [None]
  - CARPAL TUNNEL SYNDROME [None]
  - BONE LOSS [None]
  - LACTOSE INTOLERANCE [None]
  - ONYCHOMYCOSIS [None]
  - EMPYEMA [None]
  - ORAL INFECTION [None]
  - CONTUSION [None]
  - HEADACHE [None]
  - MUSCLE STRAIN [None]
  - DRUG HYPERSENSITIVITY [None]
  - ADVERSE DRUG REACTION [None]
  - ABSCESS ORAL [None]
  - HEAD INJURY [None]
  - TOOTH ABSCESS [None]
  - RHINITIS [None]
  - BURSITIS [None]
  - OSTEONECROSIS OF JAW [None]
  - BLADDER DISORDER [None]
  - NAUSEA [None]
  - DENTAL FISTULA [None]
  - BACK INJURY [None]
  - NECK INJURY [None]
  - ABDOMINAL DISTENSION [None]
  - INFECTION [None]
